FAERS Safety Report 6439682-1 (Version None)
Quarter: 2009Q4

REPORT INFORMATION
  Report Type: 
  Country: None (occurrence: None)
  Receive Date: 20091113
  Receipt Date: 20091103
  Transmission Date: 20100525
  Serious: Yes (Other)
  Sender: FDA-Public Use
  Company Number: US-PFIZER INC-2009292952

PATIENT
  Sex: Female

DRUGS (2)
  1. GEODON [Suspect]
  2. FLUOXETINE [Suspect]

REACTIONS (2)
  - METABOLIC SYNDROME [None]
  - WEIGHT INCREASED [None]
